FAERS Safety Report 9902090 (Version 2)
Quarter: 2014Q1

REPORT INFORMATION
  Report Type: Spontaneous
  Country: US (occurrence: US)
  Receive Date: 20140217
  Receipt Date: 20140217
  Transmission Date: 20141002
  Serious: Yes (Other)
  Sender: FDA-Public Use
  Company Number: US-GE HEALTHCARE MEDICAL DIAGNOSTICS-OSCN-PR-0810S-0559

PATIENT
  Sex: Female

DRUGS (8)
  1. OMNISCAN [Suspect]
     Indication: SKIN ULCER
     Dates: start: 20041221, end: 20041221
  2. OMNISCAN [Suspect]
     Indication: OSTEOMYELITIS
     Dates: start: 20050214, end: 20050214
  3. OMNISCAN [Suspect]
     Indication: CEREBROVASCULAR ACCIDENT
     Dates: start: 20060616, end: 20060616
  4. GADOLINIUM (UNSPECIFIED) [Suspect]
     Indication: PRODUCT USED FOR UNKNOWN INDICATION
     Dates: start: 20041221, end: 20041221
  5. GADOLINIUM (UNSPECIFIED) [Suspect]
     Indication: PRODUCT USED FOR UNKNOWN INDICATION
     Dates: start: 20050214, end: 20050214
  6. GADOLINIUM (UNSPECIFIED) [Suspect]
     Indication: PRODUCT USED FOR UNKNOWN INDICATION
     Dates: start: 20070801, end: 20070801
  7. MAGNEVIST [Suspect]
     Indication: HEADACHE
     Dates: start: 20070801, end: 20070801
  8. OPTIMARK [Suspect]
     Indication: PRODUCT USED FOR UNKNOWN INDICATION

REACTIONS (1)
  - Nephrogenic systemic fibrosis [Not Recovered/Not Resolved]
